FAERS Safety Report 6075764-4 (Version None)
Quarter: 2009Q1

REPORT INFORMATION
  Report Type: 
  Country: None (occurrence: None)
  Receive Date: 20090212
  Receipt Date: 20090205
  Transmission Date: 20090719
  Serious: Yes (Other)
  Sender: FDA-Public Use
  Company Number: CH-JNJFOC-20090105886

PATIENT
  Sex: Male
  Weight: 80.5 kg

DRUGS (2)
  1. SPORANOX [Suspect]
     Route: 048
  2. SPORANOX [Suspect]
     Indication: ONYCHOMYCOSIS
     Route: 048

REACTIONS (5)
  - BLOOD CREATINE PHOSPHOKINASE INCREASED [None]
  - EPIGASTRIC DISCOMFORT [None]
  - MYALGIA [None]
  - OEDEMA [None]
  - TRANSAMINASES INCREASED [None]
